FAERS Safety Report 14926123 (Version 1)
Quarter: 2018Q2

REPORT INFORMATION
  Report Type: Spontaneous
  Country: FR (occurrence: FR)
  Receive Date: 20180523
  Receipt Date: 20180523
  Transmission Date: 20180711
  Serious: Yes (Other)
  Sender: FDA-Public Use
  Company Number: FR-MERCK KGAA-2048260

PATIENT
  Age: 35 Year
  Sex: Female

DRUGS (1)
  1. NOVOTHYROX [Suspect]
     Active Substance: LEVOTHYROXINE SODIUM
     Indication: PRODUCT USED FOR UNKNOWN INDICATION
     Dates: start: 2017

REACTIONS (23)
  - Angina pectoris [None]
  - Myalgia [Not Recovered/Not Resolved]
  - Emotional distress [None]
  - Decreased activity [None]
  - Anger [None]
  - Mood swings [None]
  - Back pain [None]
  - Malaise [None]
  - Housebound [None]
  - Job dissatisfaction [None]
  - Palpitations [None]
  - Nausea [None]
  - Oropharyngeal pain [Not Recovered/Not Resolved]
  - Depression [None]
  - Loss of libido [None]
  - Migraine [None]
  - Dysphagia [None]
  - Nightmare [None]
  - Anxiety [None]
  - Fatigue [None]
  - Aphasia [None]
  - Blood thyroid stimulating hormone increased [Not Recovered/Not Resolved]
  - Pain in extremity [None]

NARRATIVE: CASE EVENT DATE: 20170708
